FAERS Safety Report 8227634-0 (Version None)
Quarter: 2012Q1

REPORT INFORMATION
  Report Type: 
  Country: None (occurrence: None)
  Receive Date: 20120322
  Receipt Date: 20120313
  Transmission Date: 20120608
  Serious: Yes (Hospitalization)
  Sender: FDA-Public Use
  Company Number: BR-ASTRAZENECA-2012SE14654

PATIENT
  Age: 23346 Day
  Sex: Male

DRUGS (2)
  1. PLAVIX [Suspect]
     Indication: CORONARY ARTERY DISEASE
     Route: 048
  2. STUDY PROCEDURE [Suspect]
     Indication: CORONARY ARTERY DISEASE
     Route: 065

REACTIONS (1)
  - GASTRIC ULCER [None]
